FAERS Safety Report 8866056 (Version 1)
Quarter: 2012Q4

REPORT INFORMATION
  Report Type: 
  Country: DE (occurrence: DE)
  Receive Date: 20121025
  Receipt Date: 20121025
  Transmission Date: 20130627
  Serious: Yes (Hospitalization, Congenital Anomaly, Other)
  Sender: FDA-Public Use
  Company Number: DE-MYLANLABS-2012S1021223

PATIENT
  Age: 0 Year
  Sex: Male
  Weight: 5.44 kg

DRUGS (4)
  1. SERTRALINE [Suspect]
     Dosage: 100 [mg/d ]/ after week 8: 50 mg/d
     Route: 064
     Dates: start: 20100101, end: 20111106
  2. FOLIO FORTE [Concomitant]
     Dosage: 0.8 [mg/d ]
     Route: 064
     Dates: start: 20110213, end: 20111106
  3. EUPHORBIUM COMP [Concomitant]
     Route: 064
  4. AMOXICILLIN PLUS [Concomitant]
     Route: 064
     Dates: start: 20111106, end: 20111106

REACTIONS (8)
  - Neonatal respiratory distress syndrome [Recovered/Resolved]
  - Large for dates baby [Unknown]
  - Patent ductus arteriosus [Recovering/Resolving]
  - Atrial septal defect [Unknown]
  - Congenital tricuspid valve incompetence [Unknown]
  - Agitation neonatal [Recovered/Resolved]
  - Hypertonia neonatal [Recovered/Resolved]
  - Exposure during pregnancy [Unknown]
